FAERS Safety Report 20576675 (Version 1)
Quarter: 2022Q1

REPORT INFORMATION
  Report Type: Spontaneous
  Country: US (occurrence: US)
  Receive Date: 20220310
  Receipt Date: 20220310
  Transmission Date: 20220423
  Serious: No
  Sender: FDA-Public Use
  Company Number: US-HORIZON THERAPEUTICS-HZN-2021-001153

PATIENT
  Sex: Female

DRUGS (1)
  1. PENNSAID [Suspect]
     Active Substance: DICLOFENAC SODIUM
     Indication: Arthralgia
     Dosage: 40 MG PUMP, UNK
     Route: 061
     Dates: start: 20210208, end: 20210220

REACTIONS (2)
  - Eosinophilic oesophagitis [Unknown]
  - Hypersensitivity [Unknown]
